FAERS Safety Report 4961087-0 (Version None)
Quarter: 2006Q1

REPORT INFORMATION
  Report Type: 
  Country: None (occurrence: None)
  Receive Date: 20060201
  Receipt Date: 20051110
  Transmission Date: 20060701
  Serious: No
  Sender: FDA-Public Use
  Company Number: 2005PV004266

PATIENT
  Age: 68 Year
  Sex: Male
  Weight: 92.0802 kg

DRUGS (11)
  1. BYETTA [Suspect]
     Indication: DIABETES MELLITUS NON-INSULIN-DEPENDENT
     Dosage: SEE IMAGE
     Route: 058
     Dates: start: 20051001, end: 20051025
  2. BYETTA [Suspect]
     Indication: DIABETES MELLITUS NON-INSULIN-DEPENDENT
     Dosage: SEE IMAGE
     Route: 058
     Dates: start: 20051026
  3. GLUCOPHAGE [Concomitant]
  4. PRANDIN [Concomitant]
  5. ASPIRIN [Concomitant]
  6. NEXIUM [Concomitant]
  7. PRAVACHOL [Concomitant]
  8. ACCUPRIL [Concomitant]
  9. FLOMAX [Concomitant]
  10. NOVOLOG [Concomitant]
  11. LANTUS [Concomitant]

REACTIONS (4)
  - BLOOD GLUCOSE INCREASED [None]
  - CARDIAC MURMUR [None]
  - OEDEMA PERIPHERAL [None]
  - WEIGHT DECREASED [None]
